FAERS Safety Report 7513006-0 (Version None)
Quarter: 2011Q2

REPORT INFORMATION
  Report Type: 
  Country: None (occurrence: None)
  Receive Date: 20110531
  Receipt Date: 20101216
  Transmission Date: 20111010
  Serious: No
  Sender: FDA-Public Use
  Company Number: US-NOVEN-ALL1-2010-06514

PATIENT
  Sex: Female
  Weight: 28.299 kg

DRUGS (2)
  1. RITALIN [Concomitant]
     Dosage: TABLET 08/--/2008 TO ONGOING
     Dates: start: 20080801
  2. DAYTRANA [Suspect]
     Indication: ATTENTION DEFICIT/HYPERACTIVITY DISORDER
     Dosage: 10 MG, 1X/DAY:QD
     Route: 062
     Dates: start: 20091001, end: 20100601

REACTIONS (2)
  - APPLICATION SITE IRRITATION [None]
  - APPLICATION SITE DISCOLOURATION [None]
